FAERS Safety Report 16561437 (Version 2)
Quarter: 2019Q3

REPORT INFORMATION
  Report Type: Report from Study
  Country: CA (occurrence: CA)
  Receive Date: 20190711
  Receipt Date: 20190824
  Transmission Date: 20191004
  Serious: Yes (Death, Hospitalization, Other)
  Sender: FDA-Public Use
  Company Number: CA-BRISTOL-MYERS SQUIBB COMPANY-BMS-2018-038550

PATIENT
  Age: 56 Year
  Sex: Female

DRUGS (1)
  1. ABATACEPT [Suspect]
     Active Substance: ABATACEPT
     Indication: RHEUMATOID ARTHRITIS
     Dosage: 750 MG, Q4WK
     Route: 042
     Dates: start: 20190326

REACTIONS (14)
  - Muscular weakness [Unknown]
  - Motor dysfunction [Unknown]
  - Skin disorder [Unknown]
  - Haemoglobin decreased [Recovered/Resolved]
  - Gastric ulcer [Unknown]
  - Contusion [Unknown]
  - Limb injury [Unknown]
  - Fall [Unknown]
  - Arthropathy [Unknown]
  - Balance disorder [Unknown]
  - Tooth fracture [Unknown]
  - Drug ineffective [Unknown]
  - Asthenia [Unknown]
  - Death [Fatal]

NARRATIVE: CASE EVENT DATE: 20190530
